FAERS Safety Report 14763262 (Version 1)
Quarter: 2018Q2

REPORT INFORMATION
  Report Type: Spontaneous
  Country: DE (occurrence: DE)
  Receive Date: 20180416
  Receipt Date: 20180416
  Transmission Date: 20180711
  Serious: Yes (Death, Hospitalization, Other)
  Sender: FDA-Public Use
  Company Number: PHHY2016DE186632

PATIENT
  Age: 82 Year
  Sex: Male
  Weight: 87 kg

DRUGS (7)
  1. CEFTRIAXONE. [Suspect]
     Active Substance: CEFTRIAXONE
     Indication: C-REACTIVE PROTEIN INCREASED
     Dosage: UNK
     Route: 065
  2. PANTOPRAZOL [Concomitant]
     Active Substance: PANTOPRAZOLE SODIUM
     Dosage: 20 MG, 1D
     Route: 048
     Dates: start: 20160914
  3. ALBIGLUTIDE [Suspect]
     Active Substance: ALBIGLUTIDE
     Dosage: 30 MG, WE
     Route: 058
     Dates: start: 20160314, end: 20160616
  4. ALBIGLUTIDE [Suspect]
     Active Substance: ALBIGLUTIDE
     Indication: TYPE 2 DIABETES MELLITUS
     Dosage: 30 MG, WE
     Route: 058
     Dates: start: 20150819, end: 20151229
  5. TOREM [Concomitant]
     Active Substance: TORSEMIDE
     Indication: CARDIAC FAILURE
     Dosage: 20 MG, 1D
     Route: 048
     Dates: start: 20160824, end: 20161008
  6. PANTOPRAZOL [Concomitant]
     Active Substance: PANTOPRAZOLE SODIUM
     Indication: GASTRIC ANTRAL VASCULAR ECTASIA
     Dosage: 40 MG, 1D
     Route: 048
     Dates: start: 20160801, end: 20160913
  7. FENTANYL. [Concomitant]
     Active Substance: FENTANYL
     Indication: PAIN
     Dosage: 50 UG, Q2W
     Route: 062
     Dates: start: 20160915

REACTIONS (3)
  - Diarrhoea [Not Recovered/Not Resolved]
  - Multiple organ dysfunction syndrome [Fatal]
  - Dehydration [Not Recovered/Not Resolved]

NARRATIVE: CASE EVENT DATE: 20161008
